FAERS Safety Report 18904214 (Version 1)
Quarter: 2021Q1

REPORT INFORMATION
  Report Type: Spontaneous
  Country: US (occurrence: US)
  Receive Date: 20210217
  Receipt Date: 20210217
  Transmission Date: 20210420
  Serious: Yes (Other)
  Sender: FDA-Public Use
  Company Number: US-MYLANLABS-2021M1009715

PATIENT
  Age: 56 Year
  Sex: Male

DRUGS (5)
  1. DAUNORUBICIN [Suspect]
     Active Substance: DAUNORUBICIN
     Indication: ACUTE LEUKAEMIA
     Dosage: RECEIVED 7+3 INDUCTION THERAPY.
     Route: 065
  2. CYTARABINE. [Suspect]
     Active Substance: CYTARABINE
     Indication: ACUTE LEUKAEMIA
     Dosage: RECEIVED 7+3 INDUCTION THERAPY
     Route: 065
  3. POSACONAZOLE [Concomitant]
     Active Substance: POSACONAZOLE
     Indication: INFECTION PROPHYLAXIS
     Dosage: UNK
     Route: 065
  4. ACICLOVIR [Concomitant]
     Active Substance: ACYCLOVIR
     Indication: INFECTION PROPHYLAXIS
     Dosage: UNK
     Route: 065
  5. LEVOFLOXACIN. [Concomitant]
     Active Substance: LEVOFLOXACIN
     Indication: INFECTION PROPHYLAXIS
     Dosage: UNK
     Route: 065

REACTIONS (1)
  - Febrile neutropenia [Recovered/Resolved]
